FAERS Safety Report 22011413 (Version 1)
Quarter: 2023Q1

REPORT INFORMATION
  Report Type: Report from Study
  Country: BR (occurrence: BR)
  Receive Date: 20230220
  Receipt Date: 20230220
  Transmission Date: 20230418
  Serious: Yes (Death, Hospitalization)
  Sender: FDA-Public Use
  Company Number: BR-Merck Healthcare KGaA-9382948

PATIENT
  Age: 81 Year
  Sex: Female

DRUGS (2)
  1. CETUXIMAB [Suspect]
     Active Substance: CETUXIMAB
     Indication: Oropharyngeal cancer
     Dosage: UNK UNK, 2/M
     Route: 042
     Dates: start: 20220923
  2. CETUXIMAB [Suspect]
     Active Substance: CETUXIMAB
     Indication: Tongue neoplasm malignant stage unspecified
     Dosage: UNK UNK, UNKNOWN
     Route: 065

REACTIONS (5)
  - Pulmonary fibrosis [Fatal]
  - Immunodeficiency [Unknown]
  - Pneumonia [Unknown]
  - Weight decreased [Unknown]
  - Off label use [Unknown]
